FAERS Safety Report 24953009 (Version 2)
Quarter: 2025Q1

REPORT INFORMATION
  Report Type: Spontaneous
  Country: GB (occurrence: GB)
  Receive Date: 20250211
  Receipt Date: 20250220
  Transmission Date: 20250409
  Serious: Yes (Other)
  Sender: AUROBINDO
  Company Number: GB-AUROBINDO-AUR-APL-2025-005742

PATIENT
  Age: 37 Week

DRUGS (11)
  1. AMIODARONE [Suspect]
     Active Substance: AMIODARONE
     Indication: Supraventricular tachycardia
     Route: 048
  2. AMIODARONE [Suspect]
     Active Substance: AMIODARONE
     Route: 048
  3. AMIODARONE [Suspect]
     Active Substance: AMIODARONE
     Route: 065
  4. FLECAINIDE [Suspect]
     Active Substance: FLECAINIDE
     Indication: Supraventricular tachycardia
     Dosage: 2 MILLIGRAM/KILOGRAM, TWO TIMES A DAY, FOR 5 DAYS
     Route: 042
  5. DIGOXIN [Suspect]
     Active Substance: DIGOXIN
     Indication: Supraventricular tachycardia
     Route: 042
  6. DIGOXIN [Suspect]
     Active Substance: DIGOXIN
     Route: 042
  7. PROPRANOLOL [Suspect]
     Active Substance: PROPRANOLOL HYDROCHLORIDE
     Indication: Supraventricular tachycardia
     Dosage: 2 MILLIGRAM/KILOGRAM, 3 TIMES A DAY
     Route: 065
  8. ESMOLOL [Suspect]
     Active Substance: ESMOLOL HYDROCHLORIDE
     Indication: Supraventricular tachycardia
     Route: 042
  9. ESMOLOL [Suspect]
     Active Substance: ESMOLOL HYDROCHLORIDE
     Route: 042
  10. ESMOLOL [Suspect]
     Active Substance: ESMOLOL HYDROCHLORIDE
     Route: 042
  11. AMIODARONE [Suspect]
     Active Substance: AMIODARONE
     Indication: Supraventricular tachycardia
     Route: 042

REACTIONS (5)
  - Drug ineffective [Unknown]
  - Metabolic acidosis [Recovered/Resolved]
  - Vomiting [Unknown]
  - Haemodynamic instability [Unknown]
  - Blood pressure abnormal [Unknown]
